FAERS Safety Report 14528858 (Version 3)
Quarter: 2018Q3

REPORT INFORMATION
  Report Type: Spontaneous
  Country: FR (occurrence: FR)
  Receive Date: 20180214
  Receipt Date: 20180927
  Transmission Date: 20181010
  Serious: Yes (Other)
  Sender: FDA-Public Use
  Company Number: FR-009507513-1802FRA005232

PATIENT
  Age: 84 Year
  Sex: Male

DRUGS (8)
  1. PREDNISOLONE. [Suspect]
     Active Substance: PREDNISOLONE
     Indication: THYMOMA MALIGNANT
     Dosage: UNK
     Route: 048
     Dates: start: 201709
  2. CYANOCOBALAMIN. [Concomitant]
     Active Substance: CYANOCOBALAMIN
     Dosage: UNK
  3. ALIMTA [Suspect]
     Active Substance: PEMETREXED DISODIUM
     Indication: THYMOMA MALIGNANT
     Dosage: UNK
     Route: 041
     Dates: start: 201709
  4. AERIUS [Concomitant]
     Active Substance: DESLORATADINE
     Dosage: UNK
  5. FOLIC ACID. [Concomitant]
     Active Substance: FOLIC ACID
     Dosage: UNK
  6. SOMATULINE [Suspect]
     Active Substance: LANREOTIDE ACETATE
     Indication: THYMOMA MALIGNANT
     Dosage: NOT REPORTED
     Route: 058
     Dates: end: 2017
  7. GRANULOCYTE COLONY STIMULATING FACTOR (UNSPECIFIED) [Concomitant]
     Active Substance: FILGRASTIM
     Dosage: UNK
  8. EMEND [Suspect]
     Active Substance: APREPITANT
     Indication: THYMOMA MALIGNANT
     Dosage: UNK
     Route: 048
     Dates: start: 201709

REACTIONS (3)
  - Retinopathy [Not Recovered/Not Resolved]
  - Keratitis [Not Recovered/Not Resolved]
  - Visual acuity reduced [Not Recovered/Not Resolved]

NARRATIVE: CASE EVENT DATE: 201801
